FAERS Safety Report 15209826 (Version 2)
Quarter: 2018Q4

REPORT INFORMATION
  Report Type: Report from Study
  Country: US (occurrence: US)
  Receive Date: 20180727
  Receipt Date: 20181206
  Transmission Date: 20190204
  Serious: Yes (Other)
  Sender: FDA-Public Use
  Company Number: US-ACTELION-A-NJ2017-162436

PATIENT
  Age: 60 Year
  Sex: Female

DRUGS (2)
  1. LISINOPRIL. [Concomitant]
     Active Substance: LISINOPRIL
  2. OPSUMIT [Suspect]
     Active Substance: MACITENTAN
     Indication: PULMONARY ARTERIAL HYPERTENSION
     Dosage: 10 MG, QD
     Route: 048
     Dates: start: 20171005

REACTIONS (6)
  - Oropharyngeal pain [Unknown]
  - Cough [Unknown]
  - Ear congestion [Unknown]
  - Anaemia [Unknown]
  - Thyroidectomy [Unknown]
  - Hypertension [Unknown]

NARRATIVE: CASE EVENT DATE: 20181127
